FAERS Safety Report 25386932 (Version 2)
Quarter: 2025Q3

REPORT INFORMATION
  Report Type: Spontaneous
  Country: EU (occurrence: EU)
  Receive Date: 20250602
  Receipt Date: 20250701
  Transmission Date: 20251021
  Serious: Yes (Other)
  Sender: BAYER HEALTHCARE PHARMACEUTICALS INC.
  Company Number: EU-BAYER-2025A072257

PATIENT
  Age: 83 Year

DRUGS (11)
  1. NUBEQA [Suspect]
     Active Substance: DAROLUTAMIDE
     Indication: Hormone-refractory prostate cancer
     Dates: start: 202304
  2. XARELTO [Suspect]
     Active Substance: RIVAROXABAN
     Dates: start: 20160525, end: 20250309
  3. DOCETAXEL [Concomitant]
     Active Substance: DOCETAXEL
     Dates: start: 202404
  4. METHYLPREDNISOLONE [Concomitant]
     Active Substance: METHYLPREDNISOLONE
     Dates: start: 202404
  5. DENOSUMAB [Concomitant]
     Active Substance: DENOSUMAB
     Dates: start: 202404
  6. NAPROXEN [Concomitant]
     Active Substance: NAPROXEN
     Dates: start: 202411
  7. TRAMADOL [Concomitant]
     Active Substance: TRAMADOL
     Dates: start: 202411
  8. ACETAMINOPHEN [Concomitant]
     Active Substance: ACETAMINOPHEN
     Dates: start: 202411
  9. RIVAROXABAN [Concomitant]
     Active Substance: RIVAROXABAN
     Dates: start: 202411
  10. ABIRATERONE [Concomitant]
     Active Substance: ABIRATERONE
     Dates: start: 202412
  11. DEXAMETHASONE [Concomitant]
     Active Substance: DEXAMETHASONE
     Dates: start: 202412

REACTIONS (9)
  - Gingival bleeding [Unknown]
  - Haematoma [Recovered/Resolved]
  - Haemoglobin decreased [Recovered/Resolved]
  - Prostatic specific antigen increased [Unknown]
  - Oedema peripheral [Not Recovered/Not Resolved]
  - Prostatic specific antigen increased [Unknown]
  - Burning sensation [Recovered/Resolved]
  - Arthralgia [None]
  - Swelling [Recovered/Resolved]

NARRATIVE: CASE EVENT DATE: 20240301
